FAERS Safety Report 5420241-4 (Version None)
Quarter: 2007Q3

REPORT INFORMATION
  Report Type: 
  Country: None (occurrence: None)
  Receive Date: 20070815
  Receipt Date: 20070802
  Transmission Date: 20080115
  Serious: Yes (Life-Threatening)
  Sender: FDA-Public Use
  Company Number: 2007JP003649

PATIENT
  Age: 64 Year
  Sex: Male

DRUGS (5)
  1. VESICARE [Suspect]
     Dosage: 5 MG, D, ORAL
     Route: 048
     Dates: start: 20061006
  2. NIFELAT L [Concomitant]
  3. TANATRIL (IMIDAPRIL HYDROCHLORIDE) [Concomitant]
  4. JUVELA (TOCOPHERYL NICOTINATE) [Concomitant]
  5. HALCION [Concomitant]

REACTIONS (2)
  - ASTHENIA [None]
  - TREMOR [None]
